FAERS Safety Report 16470717 (Version 2)
Quarter: 2019Q4

REPORT INFORMATION
  Report Type: Spontaneous
  Country: US (occurrence: US)
  Receive Date: 20190624
  Receipt Date: 20191226
  Transmission Date: 20200122
  Serious: No
  Sender: FDA-Public Use
  Company Number: US-CATALYST PHARMACEUTICALS, INC-2019CAT00160

PATIENT
  Age: 76 Year
  Sex: Male
  Weight: 86.17 kg

DRUGS (5)
  1. FISH OIL [Concomitant]
     Active Substance: FISH OIL
  2. ATENOLOL. [Concomitant]
     Active Substance: ATENOLOL
     Dosage: 25 MG (TITER), 1X/DAY
  3. ASPIRIN. [Concomitant]
     Active Substance: ASPIRIN
     Dosage: 81 MG, 1X/DAY
  4. FIRDAPSE [Suspect]
     Active Substance: AMIFAMPRIDINE
     Indication: MYASTHENIC SYNDROME
     Dosage: 20 MG, 3X/DAY
     Route: 048
     Dates: start: 20190516
  5. COQ10 [Concomitant]
     Active Substance: UBIDECARENONE

REACTIONS (3)
  - Dysgeusia [Unknown]
  - Drug ineffective [Recovered/Resolved]
  - Paraesthesia oral [Unknown]

NARRATIVE: CASE EVENT DATE: 2019
